FAERS Safety Report 4876695-5 (Version None)
Quarter: 2006Q1

REPORT INFORMATION
  Report Type: 
  Country: None (occurrence: None)
  Receive Date: 20060110
  Receipt Date: 20050317
  Transmission Date: 20060701
  Serious: Yes (Hospitalization)
  Sender: FDA-Public Use
  Company Number: US-MERCK-0503USA03424

PATIENT
  Age: 58 Year
  Sex: Female

DRUGS (1)
  1. VIOXX [Suspect]
     Route: 048
     Dates: start: 20010925

REACTIONS (17)
  - ABDOMINAL HAEMATOMA [None]
  - ACUTE CORONARY SYNDROME [None]
  - AORTIC VALVE INCOMPETENCE [None]
  - ATRIAL FIBRILLATION [None]
  - CARDIAC MURMUR [None]
  - CHEST PAIN [None]
  - CORONARY ARTERY DISEASE [None]
  - GASTRITIS [None]
  - HAEMATOMA [None]
  - HEART RATE INCREASED [None]
  - HYPERLIPIDAEMIA [None]
  - HYPERTROPHIC CARDIOMYOPATHY [None]
  - INJURY [None]
  - OSTEOARTHRITIS [None]
  - PALPITATIONS [None]
  - PEPTIC ULCER [None]
  - VENTRICULAR DYSFUNCTION [None]
